FAERS Safety Report 7688237-X (Version None)
Quarter: 2011Q3

REPORT INFORMATION
  Report Type: 
  Country: None (occurrence: None)
  Receive Date: 20110817
  Receipt Date: 20110711
  Transmission Date: 20111222
  Serious: No
  Sender: FDA-Public Use
  Company Number: US-GLAXOSMITHKLINE-A0936296A

PATIENT
  Age: 58 Year
  Sex: Female

DRUGS (9)
  1. CENTRUM SILVER [Concomitant]
  2. UNSPECIFIED MEDICATION [Concomitant]
  3. TYLENOL-500 [Concomitant]
  4. VOTRIENT [Suspect]
     Indication: RENAL CELL CARCINOMA
     Dosage: 800MG PER DAY
     Route: 048
     Dates: start: 20110710
  5. DIOVAN HCT [Concomitant]
  6. LEVOTHYROXINE SODIUM [Concomitant]
  7. CALCIUM CARBONATE [Concomitant]
  8. MOTRIN [Concomitant]
  9. VITAMIN D [Concomitant]

REACTIONS (1)
  - VOMITING [None]
